FAERS Safety Report 11201576 (Version 2)
Quarter: 2019Q3

REPORT INFORMATION
  Report Type: Report from Study
  Country: US (occurrence: US)
  Receive Date: 20150619
  Receipt Date: 20190725
  Transmission Date: 20191004
  Serious: Yes (Other)
  Sender: FDA-Public Use
  Company Number: US-SA-2015SA083793

PATIENT
  Age: 69 Year
  Sex: Female

DRUGS (3)
  1. INSULIN GLARGINE [Suspect]
     Active Substance: INSULIN GLARGINE
     Dosage: 45 DF,QD
     Route: 058
     Dates: start: 20110101, end: 201608
  2. INSULIN GLARGINE [Suspect]
     Active Substance: INSULIN GLARGINE
     Indication: DIABETES MELLITUS
     Dosage: 25 DF,BID
     Route: 058
     Dates: start: 20011023
  3. INSULIN GLARGINE [Suspect]
     Active Substance: INSULIN GLARGINE
     Dosage: 25 DF,QD
     Route: 058

REACTIONS (10)
  - Pain [Unknown]
  - Hypertension [Unknown]
  - Femur fracture [Recovering/Resolving]
  - Thrombosis [Recovering/Resolving]
  - Fall [Unknown]
  - Tremor [Unknown]
  - Blood glucose increased [Recovered/Resolved]
  - Hyperglycaemia [Unknown]
  - Arthritis [Recovering/Resolving]
  - Inappropriate schedule of product administration [Unknown]

NARRATIVE: CASE EVENT DATE: 20011023
